FAERS Safety Report 5049263-2 (Version None)
Quarter: 2006Q3

REPORT INFORMATION
  Report Type: 
  Country: None (occurrence: None)
  Receive Date: 20060706
  Receipt Date: 20060620
  Transmission Date: 20061208
  Serious: Yes (Other)
  Sender: FDA-Public Use
  Company Number: PHNU2006DE02022

PATIENT
  Age: 61 Year
  Sex: Male
  Weight: 133 kg

DRUGS (7)
  1. SANDIMMUNE [Suspect]
     Indication: HEART TRANSPLANT
     Dosage: 150/O/175MG/DAY; ORAL
     Route: 048
     Dates: start: 19930101
  2. AMOXICILLIN TRIHYDRATE+POTASSIUM CLAVULANATE SANDOZ (NGX) (AMOXICILLIN [Suspect]
     Indication: ERYSIPELAS
     Dosage: 500 MG, TID; ORAL
     Route: 048
     Dates: start: 20060309
  3. ALLOPURINOL [Concomitant]
  4. XANEF (ENALAPRIL MALEATE) [Concomitant]
  5. CONCOR COR (BISOPROLOL) [Concomitant]
  6. L-THYROXINE (LEVOTHYROXINE) [Concomitant]
  7. METAMIZOLE [Concomitant]

REACTIONS (12)
  - ARRHYTHMIA [None]
  - CARDIAC FAILURE [None]
  - DIABETIC NEPHROPATHY [None]
  - DRUG HYPERSENSITIVITY [None]
  - DRUG INTERACTION [None]
  - ERYSIPELAS [None]
  - GAMMA-GLUTAMYLTRANSFERASE INCREASED [None]
  - GOITRE [None]
  - HEPATIC CONGESTION [None]
  - HYPOGLYCAEMIA [None]
  - RENAL FAILURE [None]
  - SEPSIS [None]
